APPROVED DRUG PRODUCT: LAMOTRIGINE
Active Ingredient: LAMOTRIGINE
Strength: 200MG
Dosage Form/Route: TABLET, EXTENDED RELEASE;ORAL
Application: A202498 | Product #004 | TE Code: AB
Applicant: SCIEGEN PHARMACEUTICALS INC
Approved: Jan 4, 2013 | RLD: No | RS: No | Type: RX